FAERS Safety Report 6958043-X (Version None)
Quarter: 2010Q3

REPORT INFORMATION
  Report Type: 
  Country: None (occurrence: None)
  Receive Date: 20100831
  Receipt Date: 20100825
  Transmission Date: 20110219
  Serious: Yes (Hospitalization)
  Sender: FDA-Public Use
  Company Number: US-BRACCO-005121

PATIENT
  Age: 49 Year
  Sex: Female

DRUGS (2)
  1. MULTIHANCE [Suspect]
     Indication: NUCLEAR MAGNETIC RESONANCE IMAGING BRAIN
     Route: 042
     Dates: start: 20100824, end: 20100824
  2. MULTIHANCE [Suspect]
     Indication: BREAST CANCER METASTATIC
     Route: 042
     Dates: start: 20100824, end: 20100824

REACTIONS (1)
  - MYOCARDIAL INFARCTION [None]
